FAERS Safety Report 5997300-0 (Version None)
Quarter: 2008Q4

REPORT INFORMATION
  Report Type: 
  Country: None (occurrence: None)
  Receive Date: 20081204
  Receipt Date: 20081124
  Transmission Date: 20090506
  Serious: Yes (Other)
  Sender: FDA-Public Use
  Company Number: CHPA2008US20954

PATIENT
  Age: 63 Year
  Sex: Male
  Weight: 83.9 kg

DRUGS (3)
  1. PREDIEM OVERNIGHT RELIEF PILLS  (SENNA GLYCOSIDES (CA SALTS OF PURIFIE [Suspect]
     Indication: CONSTIPATION
     Dosage: 30 MG, DAILY AT NIGHT, ORAL
     Route: 048
  2. ANTIHYPERTENSIVES (NO INGREDIENTS/SUBTANCES) [Concomitant]
  3. DRUG THERAPY NOS (DRUG THERAPY NOS) [Concomitant]

REACTIONS (4)
  - COLONOSCOPY ABNORMAL [None]
  - DIVERTICULITIS [None]
  - DRUG DEPENDENCE [None]
  - INTENTIONAL DRUG MISUSE [None]
